FAERS Safety Report 14895464 (Version 2)
Quarter: 2019Q2

REPORT INFORMATION
  Report Type: Report from Study
  Country: FR (occurrence: FR)
  Receive Date: 20180515
  Receipt Date: 20190409
  Transmission Date: 20190711
  Serious: Yes (Hospitalization)
  Sender: FDA-Public Use
  Company Number: FR-MERCK KGAA-2047757

PATIENT
  Age: 66 Year
  Sex: Female

DRUGS (1)
  1. EUTHYROX [Suspect]
     Active Substance: LEVOTHYROXINE SODIUM
     Indication: HYPOTHYROIDISM

REACTIONS (6)
  - Aphasia [None]
  - Premature ageing [None]
  - Fatigue [None]
  - Myalgia [None]
  - Drug intolerance [None]
  - Sudden hearing loss [None]

NARRATIVE: CASE EVENT DATE: 201707
